FAERS Safety Report 6820288-7 (Version None)
Quarter: 2010Q3

REPORT INFORMATION
  Report Type: 
  Country: None (occurrence: None)
  Receive Date: 20100707
  Receipt Date: 20100630
  Transmission Date: 20110219
  Serious: Yes (Other)
  Sender: FDA-Public Use
  Company Number: US-JNJFOC-20100700744

PATIENT
  Sex: Female
  Weight: 72.58 kg

DRUGS (3)
  1. ULTRAM [Suspect]
     Indication: PAIN
     Dosage: AS NEEDED
     Route: 048
  2. TRAMADOL [Suspect]
     Indication: PAIN
     Dosage: AS NEEDED
     Route: 048
  3. ULTRAM ER [Suspect]
     Indication: PAIN
     Dosage: EXTENDED RELEASE, 2 TIMES A DAY
     Route: 048

REACTIONS (19)
  - ABASIA [None]
  - ASTHENIA [None]
  - BEDRIDDEN [None]
  - COUGH [None]
  - FOREIGN BODY [None]
  - GASTROOESOPHAGEAL REFLUX DISEASE [None]
  - HAND FRACTURE [None]
  - HEADACHE [None]
  - HYPERHIDROSIS [None]
  - INSOMNIA [None]
  - JOINT INJURY [None]
  - LUNG DISORDER [None]
  - NAUSEA [None]
  - PAIN [None]
  - PRODUCT QUALITY ISSUE [None]
  - ROTATOR CUFF SYNDROME [None]
  - SENSATION OF FOREIGN BODY [None]
  - SNEEZING [None]
  - SUICIDAL IDEATION [None]
